FAERS Safety Report 5547279-0 (Version None)
Quarter: 2007Q4

REPORT INFORMATION
  Report Type: 
  Country: None (occurrence: None)
  Receive Date: 20071211
  Receipt Date: 20071129
  Transmission Date: 20080405
  Serious: Yes (Other)
  Sender: FDA-Public Use
  Company Number: US-PFIZER INC-2007101105

PATIENT
  Sex: Female
  Weight: 82.272 kg

DRUGS (16)
  1. DILANTIN [Suspect]
     Indication: CONVULSION
     Dosage: DAILY DOSE:630MG
  2. AGGRENOX [Concomitant]
  3. ESTRACE [Concomitant]
  4. MIDAMOR [Concomitant]
  5. ALL OTHER THERAPEUTIC PRODUCTS [Concomitant]
  6. KEPPRA [Concomitant]
  7. VALIUM [Concomitant]
  8. IMDUR [Concomitant]
  9. DEMADEX [Concomitant]
  10. POTASSIUM CHLORIDE [Concomitant]
  11. ZOLOFT [Concomitant]
  12. HYDROCHLOROTHIAZIDE [Concomitant]
  13. ZANTAC [Concomitant]
  14. ZOCOR [Concomitant]
  15. TUMS [Concomitant]
     Indication: MINERAL SUPPLEMENTATION
  16. ACETYLSALICYLIC ACID SRT [Concomitant]

REACTIONS (7)
  - ANTICONVULSANT DRUG LEVEL BELOW THERAPEUTIC [None]
  - CEREBROVASCULAR ACCIDENT [None]
  - CHRONIC OBSTRUCTIVE PULMONARY DISEASE [None]
  - CONVULSION [None]
  - EMPHYSEMA [None]
  - HEPATOMEGALY [None]
  - NAUSEA [None]
